FAERS Safety Report 10874029 (Version 1)
Quarter: 2015Q1

REPORT INFORMATION
  Report Type: Spontaneous
  Country: US (occurrence: US)
  Receive Date: 20150227
  Receipt Date: 20150227
  Transmission Date: 20150721
  Serious: No
  Sender: FDA-Public Use
  Company Number: US-ASTRAZENECA-2015SE16218

PATIENT
  Sex: Male

DRUGS (4)
  1. KLOR-CON M [Interacting]
     Active Substance: POTASSIUM CHLORIDE
     Route: 065
  2. CRESTOR [Suspect]
     Active Substance: ROSUVASTATIN CALCIUM
     Route: 048
  3. RAMIPRIL. [Interacting]
     Active Substance: RAMIPRIL
     Route: 048
  4. COREG [Interacting]
     Active Substance: CARVEDILOL
     Route: 065

REACTIONS (3)
  - Drug interaction [Unknown]
  - Paraesthesia [Unknown]
  - Muscular weakness [Unknown]
